FAERS Safety Report 5726410-8 (Version None)
Quarter: 2008Q2

REPORT INFORMATION
  Report Type: 
  Country: None (occurrence: None)
  Receive Date: 20080502
  Receipt Date: 20080429
  Transmission Date: 20081010
  Serious: Yes (Life-Threatening, Hospitalization, Other)
  Sender: FDA-Public Use
  Company Number: A0718664A

PATIENT
  Age: 66 Year
  Sex: Female
  Weight: 104.5 kg

DRUGS (7)
  1. AVANDAMET [Suspect]
     Route: 048
     Dates: start: 20030101, end: 20071101
  2. STATINS [Concomitant]
  3. TOPROL-XL [Concomitant]
     Indication: HYPERTENSION
     Dosage: 150MG PER DAY
     Route: 048
     Dates: start: 20021201
  4. ZOLOFT [Concomitant]
     Indication: DEPRESSION
     Dosage: 100MG PER DAY
     Route: 048
     Dates: start: 20001201
  5. PRILOSEC [Concomitant]
     Dosage: 40MG PER DAY
     Route: 042
     Dates: start: 20080201
  6. SYNTHROID [Concomitant]
     Indication: HYPOTHYROIDISM
     Dosage: .175MG PER DAY
     Route: 048
  7. ZESTORETIC [Concomitant]
     Indication: HYPERTENSION
     Route: 048
     Dates: start: 20010401

REACTIONS (2)
  - CARDIAC DISORDER [None]
  - MYOCARDIAL INFARCTION [None]
